FAERS Safety Report 5665048-8 (Version None)
Quarter: 2008Q1

REPORT INFORMATION
  Report Type: 
  Country: None (occurrence: None)
  Receive Date: 20080314
  Receipt Date: 20080304
  Transmission Date: 20080703
  Serious: Yes (Other)
  Sender: FDA-Public Use
  Company Number: US-PFIZER INC-2008020974

PATIENT
  Sex: Male
  Weight: 63.636 kg

DRUGS (4)
  1. VIAGRA [Suspect]
     Indication: ERECTILE DYSFUNCTION
  2. CAVERJECT [Suspect]
     Indication: ERECTILE DYSFUNCTION
     Dates: start: 20080201, end: 20080201
  3. CYTOMEL [Concomitant]
  4. LAMICTAL [Concomitant]

REACTIONS (2)
  - ARTERIOVENOUS MALFORMATION [None]
  - DRUG INEFFECTIVE [None]
